FAERS Safety Report 10311644 (Version 1)
Quarter: 2014Q3

REPORT INFORMATION
  Report Type: Spontaneous
  Country: US (occurrence: None)
  Receive Date: 20140715
  Receipt Date: 20140715
  Transmission Date: 20150326
  Serious: Yes (Hospitalization, Other)
  Sender: FDA-Public Use
  Company Number: AUR-APL-2014-07253

PATIENT
  Age: 0 Day
  Sex: Male

DRUGS (7)
  1. LEVETIRACTAM [Suspect]
     Active Substance: LEVETIRACETAM
     Indication: CONVULSION
     Dosage: 750 MG, TWO TIMES A DAY, UNKNOWN
     Dates: start: 20120217
  2. COBICISTAT [Suspect]
     Active Substance: COBICISTAT
     Indication: HIV INFECTION
     Dosage: 150 MG, ONCE A DAY, UNKNOWN
     Dates: start: 20120223
  3. DARUNAVIR [Suspect]
     Active Substance: DARUNAVIR
     Indication: HIV INFECTION
     Dosage: 800 MG, ONCE A DAY, UNKNOWN
     Dates: start: 20120223
  4. TRUVADA [Concomitant]
     Active Substance: EMTRICITABINE\TENOFOVIR DISOPROXIL FUMARATE
     Dosage: 500 MG, ONCE A DAY, UNKNOWN
     Dates: start: 20120223
  5. ALEVE [Suspect]
     Active Substance: NAPROXEN SODIUM
     Indication: HEADACHE
     Dosage: 220 MG, UNK, UNKNOWN
     Dates: start: 20130815
  6. MOTRIN IB [Suspect]
     Active Substance: IBUPROFEN
     Indication: HEADACHE
     Dosage: 400 MG, AS NECSSARY, UNKNOWN
     Dates: start: 20140115
  7. INSULIN (INSULIN) [Suspect]
     Active Substance: INSULIN NOS
     Indication: TYPE 1 DIABETES MELLITUS
     Route: 064
     Dates: start: 20130815

REACTIONS (3)
  - Exposure via father [None]
  - Premature baby [None]
  - Foetal exposure during pregnancy [None]

NARRATIVE: CASE EVENT DATE: 20140217
